FAERS Safety Report 10553438 (Version 1)
Quarter: 2014Q4

REPORT INFORMATION
  Report Type: Spontaneous
  Country: GB (occurrence: GB)
  Receive Date: 20141030
  Receipt Date: 20141030
  Transmission Date: 20150529
  Serious: Yes (Hospitalization, Other)
  Sender: FDA-Public Use
  Company Number: GB-ROCHE-1479236

PATIENT
  Age: 43 Year
  Sex: Female
  Weight: 84.8 kg

DRUGS (7)
  1. LANSOPRAZOLE. [Concomitant]
     Active Substance: LANSOPRAZOLE
     Route: 065
  2. HYDROCORTISONE SODIUM SUCCINATE [Suspect]
     Active Substance: HYDROCORTISONE SODIUM SUCCINATE
     Indication: INFUSION RELATED REACTION
     Route: 042
     Dates: start: 20141003, end: 20141003
  3. METHOTREXATE [Concomitant]
     Active Substance: METHOTREXATE
     Route: 065
  4. PIRITON [Suspect]
     Active Substance: CHLORPHENIRAMINE MALEATE
     Indication: INFUSION RELATED REACTION
     Route: 042
     Dates: start: 20141003, end: 20141003
  5. COCODAMOL [Concomitant]
     Active Substance: ACETAMINOPHEN\CODEINE PHOSPHATE
     Route: 065
  6. ROACTEMRA [Suspect]
     Active Substance: TOCILIZUMAB
     Indication: RHEUMATOID ARTHRITIS
     Route: 042
     Dates: start: 20141003, end: 20141003
  7. PREDNISOLONE. [Concomitant]
     Active Substance: PREDNISOLONE
     Route: 065

REACTIONS (6)
  - Tachycardia [Recovered/Resolved]
  - Tremor [Recovered/Resolved]
  - Urticaria [Unknown]
  - Cough [Unknown]
  - Pyrexia [Recovered/Resolved]
  - Hypertension [Recovered/Resolved]

NARRATIVE: CASE EVENT DATE: 20141003
